FAERS Safety Report 7231089-2 (Version None)
Quarter: 2011Q1

REPORT INFORMATION
  Report Type: 
  Country: None (occurrence: None)
  Receive Date: 20110118
  Receipt Date: 20101223
  Transmission Date: 20110831
  Serious: Yes (Other)
  Sender: FDA-Public Use
  Company Number: SE-ASTRAZENECA-2010SE60450

PATIENT
  Sex: Male

DRUGS (6)
  1. NEZERIL [Concomitant]
  2. PULMICORT [Suspect]
     Route: 055
  3. PULMICORT [Suspect]
     Route: 055
  4. ACETYLCYSTEINE [Concomitant]
  5. PULMICORT [Suspect]
     Route: 055
  6. BRICANYL [Concomitant]

REACTIONS (5)
  - BODY TEMPERATURE INCREASED [None]
  - DEPRESSION [None]
  - SUICIDAL IDEATION [None]
  - HYPERHIDROSIS [None]
  - MUSCULAR WEAKNESS [None]
